FAERS Safety Report 10341611 (Version 2)
Quarter: 2014Q3

REPORT INFORMATION
  Report Type: Spontaneous
  Country: NL (occurrence: NL)
  Receive Date: 20140725
  Receipt Date: 20140813
  Transmission Date: 20150326
  Serious: Yes (Hospitalization)
  Sender: FDA-Public Use
  Company Number: PHHY2014NL089873

PATIENT
  Sex: Female

DRUGS (10)
  1. TEMAZEPAM. [Concomitant]
     Active Substance: TEMAZEPAM
     Dosage: 10 MG, QD
     Dates: start: 20140619
  2. FRAXIPARINE [Concomitant]
     Active Substance: NADROPARIN CALCIUM
     Dosage: 9500 IU/ML, QD
  3. DEPAKENE [Concomitant]
     Active Substance: VALPROIC ACID
     Dosage: 500 MG, BID
     Dates: start: 2008
  4. SLOW K [Concomitant]
     Active Substance: POTASSIUM CHLORIDE
     Dosage: 2 DF (600 MG), TID
     Dates: start: 20140630, end: 20140708
  5. COMBIVENT [Concomitant]
     Active Substance: ALBUTEROL SULFATE\IPRATROPIUM BROMIDE
     Dosage: 1 DF, 6 TIMES DAILY
     Route: 045
     Dates: start: 20140630, end: 20140708
  6. FLUIMICIL [Concomitant]
     Dosage: 1 DF, QD (600 MG)
     Dates: start: 20140630, end: 20140708
  7. CARBAMAZEPINE. [Suspect]
     Active Substance: CARBAMAZEPINE
     Indication: PARTIAL SEIZURES
     Dosage: 2 DF, BID (200 MG)
     Dates: start: 2000, end: 20140702
  8. ASCAL [Concomitant]
     Active Substance: CARBASALATE
     Dosage: 1 DF, QD (100 MG)
     Dates: start: 2007
  9. PANTOPRAZOLE SODIUM [Concomitant]
     Active Substance: PANTOPRAZOLE SODIUM
     Dosage: 40 MG, QD
     Dates: start: 2012
  10. FUROSEMIDE. [Concomitant]
     Active Substance: FUROSEMIDE
     Dosage: 1 DF, QD (40 MG)
     Dates: start: 20140630

REACTIONS (2)
  - Interstitial lung disease [Recovering/Resolving]
  - Dyspnoea [Recovering/Resolving]

NARRATIVE: CASE EVENT DATE: 20140625
